APPROVED DRUG PRODUCT: RANITIDINE HYDROCHLORIDE
Active Ingredient: RANITIDINE HYDROCHLORIDE
Strength: EQ 15MG BASE/ML
Dosage Form/Route: SYRUP;ORAL
Application: A078312 | Product #001
Applicant: AMNEAL PHARMACEUTICALS
Approved: Sep 2, 2008 | RLD: No | RS: No | Type: DISCN